FAERS Safety Report 17176772 (Version 3)
Quarter: 2021Q1

REPORT INFORMATION
  Report Type: Report from Study
  Country: JP (occurrence: JP)
  Receive Date: 20191219
  Receipt Date: 20210127
  Transmission Date: 20210419
  Serious: Yes (Death)
  Sender: FDA-Public Use
  Company Number: JP-UCBSA-2019053849

PATIENT
  Age: 63 Year
  Sex: Male
  Weight: 56.2 kg

DRUGS (10)
  1. LACOSAMIDE. [Suspect]
     Active Substance: LACOSAMIDE
     Dosage: 150 MILLIGRAM, 2X/DAY (BID)
     Route: 048
     Dates: start: 20180723, end: 20180807
  2. LACOSAMIDE. [Suspect]
     Active Substance: LACOSAMIDE
     Dosage: 200 MILLIGRAM, 2X/DAY (BID)
     Route: 048
     Dates: start: 20180808, end: 20190228
  3. E KEPPRA [Concomitant]
     Active Substance: LEVETIRACETAM
     Dosage: 1500 MILLIGRAM, DAILY
     Route: 048
     Dates: end: 20170903
  4. E KEPPRA [Concomitant]
     Active Substance: LEVETIRACETAM
     Dosage: 2000 MILLIGRAM, DAILY
     Route: 048
  5. TOPINA [Concomitant]
     Active Substance: TOPIRAMATE
     Indication: PARTIAL SEIZURES WITH SECONDARY GENERALISATION
     Route: 048
     Dates: start: 20181105
  6. LACOSAMIDE. [Suspect]
     Active Substance: LACOSAMIDE
     Indication: PARTIAL SEIZURES WITH SECONDARY GENERALISATION
     Dosage: 50 MILLIGRAM, 2X/DAY (BID)
     Route: 048
     Dates: start: 20180620, end: 20180626
  7. DEPAKENE?R [Suspect]
     Active Substance: VALPROATE SODIUM
     Dosage: 800 MG DAILY
     Route: 048
     Dates: start: 20180822, end: 20181105
  8. E KEPPRA [Concomitant]
     Active Substance: LEVETIRACETAM
     Indication: PARTIAL SEIZURES WITH SECONDARY GENERALISATION
     Dosage: 1000 MILLIGRAM, DAILY
     Route: 048
     Dates: end: 20170613
  9. DEPAKENE?R [Suspect]
     Active Substance: VALPROATE SODIUM
     Indication: PARTIAL SEIZURES WITH SECONDARY GENERALISATION
     Dosage: 800 MG DAILY
     Route: 048
     Dates: end: 20070718
  10. LACOSAMIDE. [Suspect]
     Active Substance: LACOSAMIDE
     Dosage: 100 MILLIGRAM, 2X/DAY (BID)
     Route: 048
     Dates: start: 20180627, end: 20180722

REACTIONS (2)
  - Brain neoplasm [Fatal]
  - Platelet count decreased [Recovered/Resolved]

NARRATIVE: CASE EVENT DATE: 20181105
